FAERS Safety Report 9794361 (Version 4)
Quarter: 2023Q4

REPORT INFORMATION
  Report Type: Spontaneous
  Country: DK (occurrence: DK)
  Receive Date: 20140102
  Receipt Date: 20231020
  Transmission Date: 20240110
  Serious: Yes (Hospitalization, Disabling, Other)
  Sender: FDA-Public Use
  Company Number: None

PATIENT
  Age: 65 Year
  Sex: Male
  Weight: 79 kg

DRUGS (28)
  1. GADOBUTROL [Suspect]
     Active Substance: GADOBUTROL
     Indication: Scan with contrast
     Dosage: 1 MILLIMOLE (S)/ML
     Route: 042
     Dates: start: 20080221, end: 20080221
  2. OMNISCAN [Suspect]
     Active Substance: GADODIAMIDE
     Indication: Magnetic resonance imaging
     Dosage: 0,5 MILLIMOLE (S)/ML
     Route: 042
     Dates: start: 20010607, end: 20010607
  3. OMNISCAN [Suspect]
     Active Substance: GADODIAMIDE
     Indication: Peripheral arterial occlusive disease
  4. CETIRIZINE HYDROCHLORIDE [Concomitant]
     Active Substance: CETIRIZINE HYDROCHLORIDE
     Route: 048
  5. INSULIN HUMAN [Concomitant]
     Active Substance: INSULIN HUMAN
     Indication: Diabetes mellitus
  6. ISODUR [Concomitant]
     Route: 048
  7. ASPIRIN [Concomitant]
     Active Substance: ASPIRIN
  8. MIRTAZAPINE [Concomitant]
     Active Substance: MIRTAZAPINE
  9. EPOETIN BETA [Concomitant]
     Active Substance: ERYTHROPOIETIN
  10. CALCIUM ACETATE [Concomitant]
     Active Substance: CALCIUM ACETATE
  11. ACETAMINOPHEN [Concomitant]
     Active Substance: ACETAMINOPHEN
  12. PLAVIX [Concomitant]
     Active Substance: CLOPIDOGREL BISULFATE
  13. VENOFER [Concomitant]
     Active Substance: IRON SUCROSE
     Route: 042
  14. CITALOPRAM HYDROBROMIDE [Concomitant]
     Active Substance: CITALOPRAM HYDROBROMIDE
  15. FUROSEMIDE [Concomitant]
     Active Substance: FUROSEMIDE
  16. VITAMIN B COMPLEX [Concomitant]
     Active Substance: CYANOCOBALAMIN\DEXPANTHENOL\NIACINAMIDE\PYRIDOXINE HYDROCHLORIDE\RIBOFLAVIN 5^-PHOSPHATE SODIUM\THIA
  17. ATRAPID [Concomitant]
     Indication: Diabetes mellitus
     Route: 058
  18. ZOPICLONE [Concomitant]
     Active Substance: ZOPICLONE
     Dosage: 7.5 MG
     Route: 048
  19. POLYETHYLENE GLYCOL\POTASSIUM CHLORIDE\SODIUM BICARBONATE\SODIUM CHLOR [Concomitant]
     Active Substance: POLYETHYLENE GLYCOL\POTASSIUM CHLORIDE\SODIUM BICARBONATE\SODIUM CHLORIDE
     Route: 048
  20. NITROGLYCERIN [Concomitant]
     Active Substance: NITROGLYCERIN
     Route: 060
  21. SIMVASTATIN [Concomitant]
     Active Substance: SIMVASTATIN
  22. ASPIRIN [Concomitant]
     Active Substance: ASPIRIN
  23. PANTOPRAZOLE SODIUM [Concomitant]
     Active Substance: PANTOPRAZOLE SODIUM
     Dosage: UNK
  24. SIMVASTATIN [Concomitant]
     Active Substance: SIMVASTATIN
  25. ACTRAPID [Concomitant]
     Active Substance: INSULIN HUMAN
     Route: 058
  26. POLYETHYLENE GLYCOL\POTASSIUM CHLORIDE\SODIUM BICARBONATE\SODIUM CHLOR [Concomitant]
     Active Substance: POLYETHYLENE GLYCOL\POTASSIUM CHLORIDE\SODIUM BICARBONATE\SODIUM CHLORIDE
     Route: 048
  27. NITROGLYCERIN [Concomitant]
     Active Substance: NITROGLYCERIN
  28. INSULIN NOS [Concomitant]
     Active Substance: INSULIN NOS

REACTIONS (33)
  - Nephrogenic systemic fibrosis [Not Recovered/Not Resolved]
  - Toe amputation [Unknown]
  - Abscess limb [Unknown]
  - Pulmonary oedema [Unknown]
  - Septic shock [Unknown]
  - Blood pressure increased [Unknown]
  - Abdominal pain [Unknown]
  - Ascites [Unknown]
  - Clostridium difficile infection [Unknown]
  - Finger amputation [Unknown]
  - Musculoskeletal disorder [None]
  - Noninfectious peritonitis [Not Recovered/Not Resolved]
  - Pain [None]
  - Pain in extremity [None]
  - Fine motor skill dysfunction [None]
  - Gait disturbance [None]
  - Sensory disturbance [None]
  - Blister [None]
  - Mobility decreased [None]
  - Skin hypertrophy [None]
  - Peau d^orange [None]
  - Limb injury [Unknown]
  - Bacterial test positive [Unknown]
  - Wound [Unknown]
  - Hypervolaemia [Unknown]
  - Dysaesthesia [None]
  - Musculoskeletal stiffness [None]
  - Skin tightness [None]
  - Myalgia [None]
  - Skin wound [None]
  - Skin induration [None]
  - Pyrexia [None]
  - C-reactive protein increased [None]

NARRATIVE: CASE EVENT DATE: 20080101
